FAERS Safety Report 25600635 (Version 2)
Quarter: 2025Q4

REPORT INFORMATION
  Report Type: Spontaneous
  Country: GB (occurrence: GB)
  Receive Date: 20250724
  Receipt Date: 20251013
  Transmission Date: 20260118
  Serious: Yes (Hospitalization, Other)
  Sender: MYLAN
  Company Number: GB-MYLANLABS-2025M1012652

PATIENT
  Sex: Male

DRUGS (8)
  1. CLOZARIL [Suspect]
     Active Substance: CLOZAPINE
     Indication: Schizophrenia
     Dosage: UNK
     Route: 048
  2. CLOZARIL [Suspect]
     Active Substance: CLOZAPINE
     Indication: Antisocial personality disorder
     Dosage: UNK
  3. CLOZARIL [Suspect]
     Active Substance: CLOZAPINE
     Indication: Borderline personality disorder
     Dosage: UNK
  4. CLOZARIL [Suspect]
     Active Substance: CLOZAPINE
     Dosage: UNK
     Route: 048
  5. CLOZARIL [Suspect]
     Active Substance: CLOZAPINE
     Dosage: UNK (REPORTED AS COMMENCED DATE 09-OCT-2025)
     Route: 065
  6. CLOZARIL [Suspect]
     Active Substance: CLOZAPINE
     Dosage: UNK (REPORTED AS COMMENCED DATE 09-OCT-2025)
  7. CLOZARIL [Suspect]
     Active Substance: CLOZAPINE
     Dosage: UNK (REPORTED AS COMMENCED DATE 09-OCT-2025)
  8. CLOZARIL [Suspect]
     Active Substance: CLOZAPINE
     Dosage: UNK (REPORTED AS COMMENCED DATE 09-OCT-2025)
     Route: 065

REACTIONS (3)
  - Hospitalisation [Unknown]
  - Thrombocytopenia [Recovered/Resolved]
  - Off label use [Unknown]
